FAERS Safety Report 20745887 (Version 1)
Quarter: 2022Q2

REPORT INFORMATION
  Report Type: Spontaneous
  Country: CA (occurrence: None)
  Receive Date: 20220423
  Receipt Date: 20220423
  Transmission Date: 20220721
  Serious: Yes (Life-Threatening)
  Sender: FDA-Public Use
  Company Number: None

PATIENT
  Age: 58 Year
  Sex: Female
  Weight: 63 kg

DRUGS (1)
  1. CEPACOL [Suspect]
     Active Substance: BENZOCAINE
     Indication: Pain
     Route: 048
     Dates: start: 20220412, end: 20220418

REACTIONS (14)
  - Peripheral coldness [None]
  - Feeling hot [None]
  - Asthenia [None]
  - Dyspnoea [None]
  - Heart rate irregular [None]
  - Anxiety [None]
  - Thirst [None]
  - Respiration abnormal [None]
  - Fall [None]
  - Confusional state [None]
  - Diarrhoea [None]
  - Anal incontinence [None]
  - Diarrhoea [None]
  - Suspected product quality issue [None]

NARRATIVE: CASE EVENT DATE: 20220418
